FAERS Safety Report 9039421 (Version 1)
Quarter: 2013Q1

REPORT INFORMATION
  Report Type: Spontaneous
  Country: US (occurrence: None)
  Receive Date: 20130123
  Receipt Date: 20130123
  Transmission Date: 20140127
  Serious: No
  Sender: FDA-Public Use
  Company Number: None

PATIENT
  Age: 63 Year
  Sex: Female
  Weight: 54.43 kg

DRUGS (1)
  1. EFFEXOR XR [Suspect]
     Indication: PAIN
     Route: 048

REACTIONS (4)
  - Product substitution issue [None]
  - Bladder pain [None]
  - Pelvic pain [None]
  - Drug ineffective [None]
